FAERS Safety Report 5313131-9 (Version None)
Quarter: 2007Q2

REPORT INFORMATION
  Report Type: 
  Country: None (occurrence: None)
  Receive Date: 20070424
  Receipt Date: 20070413
  Transmission Date: 20071010
  Serious: Yes (Death)
  Sender: FDA-Public Use
  Company Number: 2007S1003265

PATIENT
  Age: 22 Year
  Sex: Female

DRUGS (1)
  1. FENTANYL TRANSDERMAL SYSTEM [Suspect]
     Dosage: 150 X 1; TRANSDERMAL
     Route: 062
     Dates: end: 20070413

REACTIONS (2)
  - ACCIDENTAL OVERDOSE [None]
  - INCORRECT DOSE ADMINISTERED [None]
